FAERS Safety Report 23295424 (Version 1)
Quarter: 2023Q4

REPORT INFORMATION
  Report Type: Spontaneous
  Country: US (occurrence: None)
  Receive Date: 20231213
  Receipt Date: 20231213
  Transmission Date: 20240110
  Serious: Yes (Death)
  Sender: FDA-Public Use
  Company Number: None

PATIENT
  Age: 76 Year
  Sex: Male
  Weight: 55.34 kg

DRUGS (16)
  1. BORTEZOMIB [Suspect]
     Active Substance: BORTEZOMIB
     Indication: Plasma cell myeloma
     Dosage: 2.1MG DAYS 1,4,8,11 IV?
     Route: 042
     Dates: start: 20220119
  2. BORTEZOMIB [Suspect]
     Active Substance: BORTEZOMIB
     Indication: Prostate cancer
  3. BORTEZOMIB [Suspect]
     Active Substance: BORTEZOMIB
     Indication: Bone cancer
  4. PROCRIT [Suspect]
     Active Substance: ERYTHROPOIETIN
     Indication: Plasma cell myeloma
     Dosage: 40000 U/ML Q WEEK IV?
     Route: 042
     Dates: start: 20220607
  5. PROCRIT [Suspect]
     Active Substance: ERYTHROPOIETIN
     Indication: Prostate cancer
  6. PROCRIT [Suspect]
     Active Substance: ERYTHROPOIETIN
     Indication: Bone cancer
  7. DIPHENHYDRAMINE [Concomitant]
  8. Dexamethasone Pho [Concomitant]
  9. FAMOTIDINE [Concomitant]
  10. ZOLEDRONIC [Suspect]
     Active Substance: ZOLEDRONIC ACID
  11. Fosapreitan [Concomitant]
  12. B-D Posiflush [Concomitant]
  13. AMLODIPINE [Concomitant]
  14. Atrovastatin [Concomitant]
  15. DOXAZOSIN [Concomitant]
  16. LOSARTAN [Concomitant]

REACTIONS (1)
  - Death [None]

NARRATIVE: CASE EVENT DATE: 20231213
